FAERS Safety Report 6013751-2 (Version None)
Quarter: 2008Q4

REPORT INFORMATION
  Report Type: 
  Country: None (occurrence: None)
  Receive Date: 20081219
  Receipt Date: 20081210
  Transmission Date: 20090506
  Serious: Yes (Hospitalization)
  Sender: FDA-Public Use
  Company Number: B0549866A

PATIENT
  Age: 29 Month
  Sex: Female
  Weight: 11 kg

DRUGS (2)
  1. ALKERAN [Suspect]
     Indication: BONE MARROW TRANSPLANT
     Dosage: 70MG SINGLE DOSE
     Route: 042
     Dates: start: 20080923, end: 20080923
  2. BUSULPHAN [Suspect]
     Indication: BONE MARROW TRANSPLANT
     Dosage: 14MG FOUR TIMES PER DAY
     Route: 042
     Dates: start: 20080918, end: 20080921

REACTIONS (6)
  - HEPATOCELLULAR INJURY [None]
  - HEPATOMEGALY [None]
  - MUCOSAL INFLAMMATION [None]
  - OEDEMA PERIPHERAL [None]
  - VENOOCCLUSIVE LIVER DISEASE [None]
  - WEIGHT INCREASED [None]
